FAERS Safety Report 6839176-5 (Version None)
Quarter: 2010Q2

REPORT INFORMATION
  Report Type: 
  Country: None (occurrence: None)
  Receive Date: 20100625
  Receipt Date: 20091230
  Transmission Date: 20101027
  Serious: Yes (Other)
  Sender: FDA-Public Use
  Company Number: VISP-PR-0912S-0623

PATIENT
  Age: 80 Year
  Sex: Female

DRUGS (1)
  1. VISIPAQUE [Suspect]
     Indication: ADRENAL DISORDER
     Dosage: 140 ML, SINGLE DOSE, I.V.
     Route: 042
     Dates: start: 20091229, end: 20091229

REACTIONS (10)
  - ANAPHYLACTOID REACTION [None]
  - DYSPNOEA [None]
  - EYE SWELLING [None]
  - FEELING HOT [None]
  - HYPOAESTHESIA ORAL [None]
  - LACRIMATION INCREASED [None]
  - LOSS OF CONSCIOUSNESS [None]
  - PARAESTHESIA ORAL [None]
  - RESPIRATORY RATE INCREASED [None]
  - SKIN BURNING SENSATION [None]
